FAERS Safety Report 4652979-0 (Version None)
Quarter: 2005Q2

REPORT INFORMATION
  Report Type: 
  Country: None (occurrence: None)
  Receive Date: 20050503
  Receipt Date: 20050418
  Transmission Date: 20051028
  Serious: Yes (Hospitalization)
  Sender: FDA-Public Use
  Company Number: 0205012

PATIENT
  Age: 65 Year
  Sex: Female
  Weight: 84.8226 kg

DRUGS (8)
  1. DEPODUR [Suspect]
     Indication: PAIN
     Dosage: 10 MG (ONCE), EPIDURAL
     Route: 008
     Dates: start: 20040407, end: 20050407
  2. KYTRIL [Concomitant]
  3. GLYCOPYRROLATE [Concomitant]
  4. VERSED [Concomitant]
  5. FENTANYL [Concomitant]
  6. ROCURONIUM (ROCURONIUM) [Concomitant]
  7. NEOSTIGMINE (NEOSTIGMINE) [Concomitant]
  8. DESFLURANE (DESFLURANE) (INHALANT) [Concomitant]

REACTIONS (7)
  - HAEMORRHAGE [None]
  - HYPERCAPNIA [None]
  - LETHARGY [None]
  - RESPIRATORY ACIDOSIS [None]
  - RESPIRATORY DEPRESSION [None]
  - SOMNOLENCE [None]
  - URINE OUTPUT DECREASED [None]
